FAERS Safety Report 7997495-3 (Version None)
Quarter: 2011Q4

REPORT INFORMATION
  Report Type: 
  Country: None (occurrence: None)
  Receive Date: 20111221
  Receipt Date: 20111221
  Transmission Date: 20120403
  Serious: No
  Sender: FDA-Public Use
  Company Number: None

PATIENT
  Age: 34 Year
  Sex: Female
  Weight: 48.987 kg

DRUGS (1)
  1. CIPROFLOXACIN HCL [Suspect]
     Indication: URINARY TRACT INFECTION
     Dosage: 1
     Route: 048
     Dates: start: 20111212, end: 20111217

REACTIONS (4)
  - NIGHTMARE [None]
  - ABDOMINAL DISCOMFORT [None]
  - TENDONITIS [None]
  - INSOMNIA [None]
